FAERS Safety Report 16806339 (Version 2)
Quarter: 2021Q3

REPORT INFORMATION
  Report Type: Spontaneous
  Country: US (occurrence: US)
  Receive Date: 20190913
  Receipt Date: 20210909
  Transmission Date: 20211014
  Serious: No
  Sender: FDA-Public Use
  Company Number: US-PERRIGO-19US001869

PATIENT
  Age: 67 Year
  Sex: Female
  Weight: 61.22 kg

DRUGS (3)
  1. LEVOTHYROXINE. [Concomitant]
     Active Substance: LEVOTHYROXINE
     Indication: HYPOTHYROIDISM
     Dosage: UNK
     Route: 065
     Dates: start: 2011
  2. MINOXIDIL. [Suspect]
     Active Substance: MINOXIDIL
     Dosage: A LITTLE MORE THAN 1 ML, BID
     Route: 061
  3. MINOXIDIL. [Suspect]
     Active Substance: MINOXIDIL
     Indication: ALOPECIA AREATA
     Dosage: A LITTLE MORE THAN 1 ML, BID
     Route: 061
     Dates: start: 201804

REACTIONS (9)
  - Hair texture abnormal [Not Recovered/Not Resolved]
  - Alopecia [Recovered/Resolved]
  - Exposure via skin contact [Recovered/Resolved]
  - Product administered at inappropriate site [Unknown]
  - Skin ulcer [Recovering/Resolving]
  - Off label use [Unknown]
  - Therapeutic product effect decreased [Unknown]
  - Skin discolouration [Not Recovered/Not Resolved]
  - Dandruff [Not Recovered/Not Resolved]

NARRATIVE: CASE EVENT DATE: 2018
